FAERS Safety Report 6578219-3 (Version None)
Quarter: 2010Q1

REPORT INFORMATION
  Report Type: 
  Country: None (occurrence: None)
  Receive Date: 20100211
  Receipt Date: 20100209
  Transmission Date: 20100710
  Serious: Yes (Hospitalization, Congenital Anomaly)
  Sender: FDA-Public Use
  Company Number: A0680696A

PATIENT
  Sex: Female

DRUGS (2)
  1. PAXIL CR [Suspect]
     Indication: DEPRESSION
     Dosage: 25MG PER DAY
     Dates: start: 20020501, end: 20030101
  2. VITAMIN TAB [Concomitant]

REACTIONS (4)
  - ABDOMINAL HERNIA [None]
  - DRUG EXPOSURE DURING PREGNANCY [None]
  - GASTROSCHISIS [None]
  - STRABISMUS [None]
